FAERS Safety Report 10602309 (Version 1)
Quarter: 2014Q4

REPORT INFORMATION
  Report Type: Spontaneous
  Country: US (occurrence: US)
  Receive Date: 20141124
  Receipt Date: 20141124
  Transmission Date: 20150529
  Serious: Yes (Other)
  Sender: FDA-Public Use
  Company Number: US-PFIZER INC-2014319469

PATIENT
  Age: 65 Year
  Sex: Male
  Weight: 73.47 kg

DRUGS (19)
  1. ASPIRIN. [Concomitant]
     Active Substance: ASPIRIN
     Dosage: 81 MG, DAILY
     Route: 048
  2. RAPAMUNE [Suspect]
     Active Substance: SIROLIMUS
     Indication: PROPHYLAXIS AGAINST TRANSPLANT REJECTION
     Dosage: 1 MG, DAILY
     Route: 048
  3. VALIUM [Concomitant]
     Active Substance: DIAZEPAM
     Dosage: 10 MG, 1X/DAY(1 TABLET AT BEDTIME AS NEEDED)
  4. CHRONULAC [Concomitant]
     Active Substance: LACTULOSE
     Dosage: 10 G, DAILY (15 MLS (10 G TOTAL) BY MOUTH DAILY AS NEEDED)
     Route: 048
  5. ZITHROMAX [Suspect]
     Active Substance: AZITHROMYCIN DIHYDRATE
     Dosage: 250 MG, DAILY
  6. QUESTRAN [Concomitant]
     Active Substance: CHOLESTYRAMINE
     Dosage: 4 G, DAILY (1 PACKET BY MOUTH DAILY)
     Route: 048
  7. TOPROL-XLTAB [Concomitant]
     Dosage: 25 MG, DAILY
     Route: 048
  8. NITROSTAT [Suspect]
     Active Substance: NITROGLYCERIN
     Indication: CHEST PAIN
     Dosage: 0.4 MG, UNK (PLACE 1 TABLET (0.4 MG TOTAL) UNDER THE TONGUE AS NEEDED)
     Route: 060
  9. AMBIEN [Concomitant]
     Active Substance: ZOLPIDEM TARTRATE
     Indication: INSOMNIA
     Dosage: 10 MG, 1 TABLET BY MOUTH AT BEDTIME AS NEEDED FOR SLEEP
     Route: 048
  10. MEDROL [Suspect]
     Active Substance: METHYLPREDNISOLONE
     Dosage: 4 MG, UNK
  11. ZESTRIL [Concomitant]
     Active Substance: LISINOPRIL
     Dosage: 5 MG, DAILY
     Route: 048
  12. ANTIVERT [Concomitant]
     Active Substance: MECLIZINE HYDROCHLORIDE
     Dosage: 25 MG, 2X/DAY
     Route: 048
  13. ELAVIL [Concomitant]
     Active Substance: AMITRIPTYLINE HYDROCHLORIDE
     Dosage: 50 MG, 1X/DAY (TAKE 50 MG BY MOUTH NIGHTLY)
     Route: 048
  14. PRINIVIL [Concomitant]
     Active Substance: LISINOPRIL
     Dosage: 5 MG, DAILY
     Route: 048
  15. FLOMAX [Concomitant]
     Active Substance: TAMSULOSIN HYDROCHLORIDE
     Dosage: 0.4 MG, DAILY (ONE CAPSULE BY MOUTH DAILY WITH DINNER)
     Route: 048
  16. VALTREX [Concomitant]
     Active Substance: VALACYCLOVIR HYDROCHLORIDE
     Dosage: 1 DF, 2X/DAY (1 TABLET (1,000 MG TOTAL) BY MOUTH 2 (TWO) TIMES DAILY)
     Route: 048
  17. NEURONTIN [Suspect]
     Active Substance: GABAPENTIN
     Dosage: 200 MG, 3X/DAY
  18. DILAUDID [Concomitant]
     Active Substance: HYDROMORPHONE HYDROCHLORIDE
     Dosage: 8 MG, AS NEEDED(EVERY 4 (FOUR) HOURS AS NEEDED)
     Route: 048
  19. PRAVACHOL [Concomitant]
     Active Substance: PRAVASTATIN SODIUM
     Dosage: 40 MG, DAILY
     Route: 048

REACTIONS (3)
  - Herpes zoster [Unknown]
  - Off label use [Unknown]
  - Liver disorder [Unknown]

NARRATIVE: CASE EVENT DATE: 20130814
